FAERS Safety Report 14450352 (Version 1)
Quarter: 2018Q1

REPORT INFORMATION
  Report Type: Report from Study
  Country: US (occurrence: US)
  Receive Date: 20180129
  Receipt Date: 20180129
  Transmission Date: 20180509
  Serious: Yes (Hospitalization, Other)
  Sender: FDA-Public Use
  Company Number: US-ARIAD-2015US005805

PATIENT
  Age: 41 Year
  Sex: Male
  Weight: 65 kg

DRUGS (9)
  1. PONATINIB [Suspect]
     Active Substance: PONATINIB
     Dosage: 45 MG, QD
     Route: 048
  2. HYDREA [Suspect]
     Active Substance: HYDROXYUREA
     Indication: CHRONIC MYELOID LEUKAEMIA
     Dosage: 1 G, BID
     Route: 048
  3. PONATINIB [Suspect]
     Active Substance: PONATINIB
     Dosage: 60 MG, QD
     Route: 048
  4. LISINOPRIL. [Concomitant]
     Active Substance: LISINOPRIL
     Indication: HYPERTENSION
     Dosage: UNK
  5. PONATINIB [Suspect]
     Active Substance: PONATINIB
     Dosage: 45 MG, QD
     Route: 048
  6. PONATINIB [Suspect]
     Active Substance: PONATINIB
     Dosage: 60 MG, QD
     Route: 048
  7. CHANTIX [Concomitant]
     Active Substance: VARENICLINE TARTRATE
     Indication: PRODUCT USED FOR UNKNOWN INDICATION
     Dosage: UNK
  8. PONATINIB [Suspect]
     Active Substance: PONATINIB
     Dosage: 45 MG, QD
     Route: 048
  9. PONATINIB [Suspect]
     Active Substance: PONATINIB
     Indication: CHRONIC MYELOID LEUKAEMIA
     Dosage: 45 MG, QD
     Route: 048
     Dates: start: 20140225

REACTIONS (24)
  - Oropharyngeal pain [Unknown]
  - Drug resistance [Unknown]
  - Drug ineffective [Unknown]
  - Transplant [Unknown]
  - Treatment noncompliance [Unknown]
  - Drug-induced liver injury [Recovering/Resolving]
  - Thrombocytosis [Not Recovered/Not Resolved]
  - Splenomegaly [Unknown]
  - Bone pain [Unknown]
  - Pain [Unknown]
  - Hospitalisation [Recovered/Resolved]
  - Leukocytosis [Not Recovered/Not Resolved]
  - Lymphadenopathy [Unknown]
  - Nausea [Not Recovered/Not Resolved]
  - Viral upper respiratory tract infection [Unknown]
  - Feeling abnormal [Unknown]
  - Hypersomnia [Unknown]
  - Arthralgia [Unknown]
  - Vomiting [Unknown]
  - Abdominal pain [Unknown]
  - Prescribed overdose [Not Recovered/Not Resolved]
  - Normochromic normocytic anaemia [Unknown]
  - Proteinuria [Unknown]
  - Diarrhoea [Not Recovered/Not Resolved]

NARRATIVE: CASE EVENT DATE: 201601
